FAERS Safety Report 10110433 (Version 1)
Quarter: 2014Q2

REPORT INFORMATION
  Report Type: Spontaneous
  Country: CA (occurrence: None)
  Receive Date: 20140423
  Receipt Date: 20140423
  Transmission Date: 20141212
  Serious: Yes (Other)
  Sender: FDA-Public Use
  Company Number: 2014-001094

PATIENT
  Age: 64 Year
  Sex: Female

DRUGS (1)
  1. ACTONEL DR (RISEDRONATE SODIUM EDETATE DISODIUM) TABLET, 35MG [Suspect]
     Route: 048

REACTIONS (2)
  - Drug-induced liver injury [None]
  - Rash pruritic [None]
